FAERS Safety Report 11030931 (Version 2)
Quarter: 2015Q2

REPORT INFORMATION
  Report Type: Spontaneous
  Country: GB (occurrence: GB)
  Receive Date: 20150415
  Receipt Date: 20150507
  Transmission Date: 20150821
  Serious: Yes (Hospitalization)
  Sender: FDA-Public Use
  Company Number: GB-TEVA-553971ACC

PATIENT

DRUGS (2)
  1. LANTUS [Suspect]
     Active Substance: INSULIN GLARGINE
     Indication: FOETAL EXPOSURE TIMING UNSPECIFIED
     Dosage: DOSE: 4 IU THEN INCREASED TO ROUGHLY 16 IU, POSSIBLY HIGHER
     Route: 064
     Dates: start: 2009
  2. METFORMIN [Suspect]
     Active Substance: METFORMIN HYDROCHLORIDE
     Indication: FOETAL EXPOSURE TIMING UNSPECIFIED
     Dosage: 1500 MILLIGRAM DAILY; STRENGTH: 500 MG
     Route: 064

REACTIONS (2)
  - Hypoglycaemia [Unknown]
  - Foetal exposure during pregnancy [Unknown]
